FAERS Safety Report 11530123 (Version 1)
Quarter: 2015Q3

REPORT INFORMATION
  Report Type: Spontaneous
  Country: US (occurrence: US)
  Receive Date: 20150921
  Receipt Date: 20150921
  Transmission Date: 20151125
  Serious: No
  Sender: FDA-Public Use
  Company Number: US-GLAXOSMITHKLINE-US2015GSK101870

PATIENT
  Age: 67 Year
  Sex: Female

DRUGS (2)
  1. LYRICA [Interacting]
     Active Substance: PREGABALIN
     Indication: RESTLESS LEGS SYNDROME
  2. REQUIP [Suspect]
     Active Substance: ROPINIROLE HYDROCHLORIDE
     Indication: RESTLESS LEGS SYNDROME

REACTIONS (6)
  - Drug effect increased [Unknown]
  - Eczema [Not Recovered/Not Resolved]
  - Lymphoedema [Not Recovered/Not Resolved]
  - Somnolence [Unknown]
  - Drug dose omission [Unknown]
  - Drug interaction [Unknown]
